FAERS Safety Report 17863812 (Version 1)
Quarter: 2020Q2

REPORT INFORMATION
  Report Type: Spontaneous
  Country: US (occurrence: US)
  Receive Date: 20200605
  Receipt Date: 20200605
  Transmission Date: 20200714
  Serious: No
  Sender: FDA-Public Use
  Company Number: US-009507513-2005USA008778

PATIENT
  Age: 81 Year
  Sex: Male

DRUGS (3)
  1. DULOXETINE HYDROCHLORIDE. [Concomitant]
     Active Substance: DULOXETINE HYDROCHLORIDE
     Indication: PARAMNESIA
     Dosage: 30 MILLIGRAM, QD
  2. REMERON [Suspect]
     Active Substance: MIRTAZAPINE
     Indication: PARAMNESIA
     Dosage: 15 MILLIGRAM, QPM (REPORTED AS Q.H.S)
     Route: 048
  3. FLUOXETINE [Concomitant]
     Active Substance: FLUOXETINE HYDROCHLORIDE
     Indication: DEPRESSION

REACTIONS (1)
  - Product use in unapproved indication [Unknown]
